FAERS Safety Report 4723287-4 (Version None)
Quarter: 2005Q3

REPORT INFORMATION
  Report Type: 
  Country: None (occurrence: None)
  Receive Date: 20050719
  Receipt Date: 20041013
  Transmission Date: 20060218
  Serious: Yes (Other)
  Sender: FDA-Public Use
  Company Number: 206214

PATIENT
  Age: 56 Year
  Sex: Female
  Weight: 56.6996 kg

DRUGS (6)
  1. AVONEX [Suspect]
     Indication: MULTIPLE SCLEROSIS
     Dosage: 30 UG; QW; IM;  15 UG; QW; IM;  30 UG; QW; IM;  15 UG; QW; IM;  30 UG; QW; IM
     Route: 030
     Dates: start: 20030101, end: 20030101
  2. AVONEX [Suspect]
     Indication: MULTIPLE SCLEROSIS
     Dosage: 30 UG; QW; IM;  15 UG; QW; IM;  30 UG; QW; IM;  15 UG; QW; IM;  30 UG; QW; IM
     Route: 030
     Dates: start: 20030101, end: 20030101
  3. AVONEX [Suspect]
     Indication: MULTIPLE SCLEROSIS
     Dosage: 30 UG; QW; IM;  15 UG; QW; IM;  30 UG; QW; IM;  15 UG; QW; IM;  30 UG; QW; IM
     Route: 030
     Dates: start: 20030101, end: 20040101
  4. AVONEX [Suspect]
     Indication: MULTIPLE SCLEROSIS
     Dosage: 30 UG; QW; IM;  15 UG; QW; IM;  30 UG; QW; IM;  15 UG; QW; IM;  30 UG; QW; IM
     Route: 030
     Dates: start: 20040401, end: 20040801
  5. AVONEX [Suspect]
     Indication: MULTIPLE SCLEROSIS
     Dosage: 30 UG; QW; IM;  15 UG; QW; IM;  30 UG; QW; IM;  15 UG; QW; IM;  30 UG; QW; IM
     Route: 030
     Dates: start: 20040901
  6. FLU SHOT [Concomitant]

REACTIONS (11)
  - AMNESIA [None]
  - CONVULSION [None]
  - COORDINATION ABNORMAL [None]
  - DEPRESSION [None]
  - FEELING DRUNK [None]
  - HALLUCINATION, AUDITORY [None]
  - HEADACHE [None]
  - INFLUENZA LIKE ILLNESS [None]
  - MULTIPLE SCLEROSIS [None]
  - STRESS [None]
  - VISION BLURRED [None]
